FAERS Safety Report 13553838 (Version 2)
Quarter: 2017Q2

REPORT INFORMATION
  Report Type: Spontaneous
  Country: IT (occurrence: IT)
  Receive Date: 20170517
  Receipt Date: 20170529
  Transmission Date: 20170830
  Serious: Yes (Hospitalization, Other)
  Sender: FDA-Public Use
  Company Number: IT-MYLANLABS-2017M1028726

PATIENT

DRUGS (1)
  1. OLANZAPINE. [Suspect]
     Active Substance: OLANZAPINE
     Indication: PRODUCT USED FOR UNKNOWN INDICATION
     Dosage: 405 MG
     Route: 030

REACTIONS (5)
  - Coma [Recovering/Resolving]
  - Miosis [Recovering/Resolving]
  - Overdose [Recovering/Resolving]
  - Post-injection delirium sedation syndrome [Recovering/Resolving]
  - Sinus tachycardia [Recovering/Resolving]
